FAERS Safety Report 9541983 (Version 1)
Quarter: 2013Q3

REPORT INFORMATION
  Report Type: Spontaneous
  Country: FR (occurrence: None)
  Receive Date: 20130918
  Receipt Date: 20130918
  Transmission Date: 20140515
  Serious: Yes (Other)
  Sender: FDA-Public Use
  Company Number: FK201304268

PATIENT
  Age: 79 Year
  Sex: Female

DRUGS (4)
  1. PACLITAXEL [Suspect]
     Indication: PRODUCT USED FOR UNKNOWN INDICATION
     Dosage: 1 IN 1 CYCLE
     Route: 042
     Dates: start: 20130809, end: 20130809
  2. CARBOPLATIN [Suspect]
     Indication: PRODUCT USED FOR UNKNOWN INDICATION
     Dosage: 1 IN 1 CYCLE
     Dates: start: 20130809, end: 20130809
  3. METHYLPREDNISOLONE (METHYLPREDNISOLONE) [Concomitant]
  4. ONDANSETRON (ONDANSETRON) [Concomitant]

REACTIONS (1)
  - Posterior reversible encephalopathy syndrome [None]
